FAERS Safety Report 7622654-9 (Version None)
Quarter: 2011Q3

REPORT INFORMATION
  Report Type: 
  Country: None (occurrence: None)
  Receive Date: 20110712
  Receipt Date: 20110628
  Transmission Date: 20111222
  Serious: Yes (Hospitalization, Other)
  Sender: FDA-Public Use
  Company Number: IPC201106-001925

PATIENT
  Age: 55 Year
  Sex: Female

DRUGS (2)
  1. METOPROLOL TARTRATE [Suspect]
     Dosage: INGESTION OF 35 TABLETS (50 MG)
  2. VERAPAMIL [Suspect]
     Dosage: INGESTION OF 30 TABLETS (40 MG)

REACTIONS (19)
  - HYPOTENSION [None]
  - HYPOPERFUSION [None]
  - PULSE ABSENT [None]
  - HEART RATE IRREGULAR [None]
  - BLOOD LACTIC ACID INCREASED [None]
  - HAEMODYNAMIC INSTABILITY [None]
  - VISUAL FIELD DEFECT [None]
  - DISORIENTATION [None]
  - OPTIC ISCHAEMIC NEUROPATHY [None]
  - SUICIDE ATTEMPT [None]
  - TOXICITY TO VARIOUS AGENTS [None]
  - COLD SWEAT [None]
  - METABOLIC ACIDOSIS [None]
  - ATRIOVENTRICULAR BLOCK SECOND DEGREE [None]
  - COMA SCALE ABNORMAL [None]
  - BRADYCARDIA [None]
  - LETHARGY [None]
  - MULTIPLE DRUG OVERDOSE INTENTIONAL [None]
  - BLOOD GLUCOSE INCREASED [None]
